FAERS Safety Report 8961450 (Version 1)
Quarter: 2012Q4

REPORT INFORMATION
  Report Type: Report from Study
  Country: FR (occurrence: FR)
  Receive Date: 20121212
  Receipt Date: 20121212
  Transmission Date: 20130627
  Serious: Yes (Life-Threatening)
  Sender: FDA-Public Use
  Company Number: FR-BAXTER-2012BAX026052

PATIENT
  Age: 35 Year
  Sex: Female
  Weight: 67 kg

DRUGS (10)
  1. ENDOXAN 2000 MG, LYOPHILISAT POUR SOLUTION INJECTABLE [Suspect]
     Indication: NODULAR LYMPHOMA
     Route: 042
     Dates: start: 20060414, end: 20071019
  2. ENDOXAN 2000 MG, LYOPHILISAT POUR SOLUTION INJECTABLE [Suspect]
     Route: 042
     Dates: start: 20060728
  3. DOXORUBICIN [Suspect]
     Indication: NODULAR LYMPHOMA
     Route: 042
     Dates: start: 20060414, end: 20071019
  4. DOXORUBICIN [Suspect]
     Route: 042
     Dates: start: 20060728
  5. VINCRISTINE [Suspect]
     Indication: NODULAR LYMPHOMA
     Route: 042
     Dates: start: 20060414, end: 20071019
  6. VINCRISTINE [Suspect]
     Route: 042
     Dates: end: 20071019
  7. PREDNISONE [Suspect]
     Indication: NODULAR LYMPHOMA
     Route: 048
     Dates: start: 20060414, end: 20071019
  8. PREDNISONE [Suspect]
     Route: 048
     Dates: start: 20060801
  9. RITUXIMAB [Suspect]
     Indication: NODULAR LYMPHOMA
     Route: 042
     Dates: start: 20060414, end: 20071019
  10. RITUXIMAB [Suspect]
     Route: 042
     Dates: start: 20060728, end: 20071019

REACTIONS (1)
  - Post transplant lymphoproliferative disorder [Recovered/Resolved]
